FAERS Safety Report 21227061 (Version 1)
Quarter: 2022Q3

REPORT INFORMATION
  Report Type: Spontaneous
  Country: US (occurrence: None)
  Receive Date: 20220817
  Receipt Date: 20220817
  Transmission Date: 20221027
  Serious: Yes (Hospitalization)
  Sender: FDA-Public Use
  Company Number: None

PATIENT
  Sex: Female

DRUGS (1)
  1. ZIEXTENZO [Suspect]
     Active Substance: PEGFILGRASTIM-BMEZ
     Indication: Breast cancer
     Dosage: OTHER FREQUENCY : EVERY21DAYS;?
     Route: 058
     Dates: start: 202207

REACTIONS (3)
  - Medical device site infection [None]
  - Influenza like illness [None]
  - Blood lactic acid increased [None]
